FAERS Safety Report 10619144 (Version 2)
Quarter: 2015Q1

REPORT INFORMATION
  Report Type: Spontaneous
  Country: HU (occurrence: HU)
  Receive Date: 20141202
  Receipt Date: 20150121
  Transmission Date: 20150720
  Serious: Yes (Death)
  Sender: FDA-Public Use
  Company Number: HU-PFIZER INC-2014324456

PATIENT

DRUGS (1)
  1. VORICONAZOLE. [Suspect]
     Active Substance: VORICONAZOLE
     Indication: ASPERGILLUS INFECTION
     Dosage: UNK
     Route: 042

REACTIONS (2)
  - Aspergillus infection [Fatal]
  - Disease progression [Fatal]
